FAERS Safety Report 6565072-7 (Version None)
Quarter: 2010Q1

REPORT INFORMATION
  Report Type: 
  Country: None (occurrence: None)
  Receive Date: 20100201
  Receipt Date: 20100119
  Transmission Date: 20100710
  Serious: Yes (Other)
  Sender: FDA-Public Use
  Company Number: JP-GENENTECH-297343

PATIENT
  Age: 58 Year
  Sex: Male

DRUGS (1)
  1. ACTIVASE [Suspect]
     Indication: RETINAL VEIN OCCLUSION
     Dosage: 0.5 ML, UNK

REACTIONS (3)
  - CORNEAL OEDEMA [None]
  - GLAUCOMA [None]
  - VITREOUS HAEMORRHAGE [None]
